FAERS Safety Report 6747262-3 (Version None)
Quarter: 2010Q2

REPORT INFORMATION
  Report Type: 
  Country: None (occurrence: None)
  Receive Date: 20100528
  Receipt Date: 20100521
  Transmission Date: 20101027
  Serious: Yes (Hospitalization)
  Sender: FDA-Public Use
  Company Number: A0791251A

PATIENT
  Age: 61 Year
  Sex: Male

DRUGS (7)
  1. AVANDIA [Suspect]
     Indication: DIABETES MELLITUS
     Dosage: 8MG PER DAY
     Route: 048
     Dates: start: 19990724, end: 20030301
  2. IMDUR [Concomitant]
  3. NORVASC [Concomitant]
  4. LIPITOR [Concomitant]
  5. GLYNASE [Concomitant]
  6. TENORMIN [Concomitant]
  7. ASPIRIN [Concomitant]

REACTIONS (2)
  - CARDIAC OPERATION [None]
  - MYOCARDIAL INFARCTION [None]
